FAERS Safety Report 7971205-8 (Version None)
Quarter: 2011Q4

REPORT INFORMATION
  Report Type: 
  Country: None (occurrence: None)
  Receive Date: 20111212
  Receipt Date: 20111206
  Transmission Date: 20120403
  Serious: Yes (Other)
  Sender: FDA-Public Use
  Company Number: PHHY2008CA28524

PATIENT
  Sex: Female

DRUGS (5)
  1. ZOLEDRONOC ACID [Suspect]
     Route: 042
     Dates: start: 20101207
  2. CALCIUM [Concomitant]
  3. SYNTHROID [Concomitant]
  4. ZOLEDRONOC ACID [Suspect]
     Indication: OSTEOPOROSIS
     Route: 042
     Dates: start: 20080930
  5. ZOLEDRONOC ACID [Suspect]
     Route: 042
     Dates: start: 20091202

REACTIONS (8)
  - EYE IRRITATION [None]
  - OCULAR HYPERAEMIA [None]
  - LIGAMENT SPRAIN [None]
  - FLANK PAIN [None]
  - EYE INFLAMMATION [None]
  - MENISCUS LESION [None]
  - DYSURIA [None]
  - MALAISE [None]
